FAERS Safety Report 23631940 (Version 1)
Quarter: 2024Q1

REPORT INFORMATION
  Report Type: Spontaneous
  Country: IT (occurrence: IT)
  Receive Date: 20240314
  Receipt Date: 20240314
  Transmission Date: 20240410
  Serious: Yes (Other)
  Sender: FDA-Public Use
  Company Number: IT-SLATERUN-2024SRLIT00026

PATIENT
  Age: 78 Year
  Sex: Male

DRUGS (6)
  1. IOPAMIDOL [Suspect]
     Active Substance: IOPAMIDOL
     Indication: Angioplasty
     Route: 013
  2. VISIPAQUE [Suspect]
     Active Substance: IODIXANOL
     Indication: Angioplasty
     Route: 013
  3. piperacillin/tazobactam and linezolid [Concomitant]
     Indication: Peritonitis
     Route: 065
  4. ceftazidime and vancomycin [Concomitant]
     Indication: Peritonitis
     Route: 065
  5. TICAGRELOR [Concomitant]
     Active Substance: TICAGRELOR
     Indication: Antiplatelet therapy
     Route: 065
  6. ASPIRIN [Concomitant]
     Active Substance: ASPIRIN
     Indication: Antiplatelet therapy
     Route: 065

REACTIONS (1)
  - Contrast encephalopathy [Recovered/Resolved]
